FAERS Safety Report 7742189-2 (Version None)
Quarter: 2011Q3

REPORT INFORMATION
  Report Type: 
  Country: None (occurrence: None)
  Receive Date: 20110912
  Receipt Date: 20110907
  Transmission Date: 20111222
  Serious: Yes (Death)
  Sender: FDA-Public Use
  Company Number: PHHY2011NL79675

PATIENT
  Sex: Male

DRUGS (2)
  1. ZOMETA [Suspect]
     Dosage: 4 MG/5ML, ONCE PER 4 WEEKS
     Route: 042
     Dates: start: 20110815
  2. ZOMETA [Suspect]
     Indication: PROSTATE CANCER METASTATIC
     Dosage: 4 MG/5ML, ONCE PER 4 WEEKS
     Route: 042
     Dates: start: 20100913

REACTIONS (1)
  - DEATH [None]
